FAERS Safety Report 19310221 (Version 2)
Quarter: 2021Q2

REPORT INFORMATION
  Report Type: Spontaneous
  Country: IN (occurrence: IN)
  Receive Date: 20210526
  Receipt Date: 20210604
  Transmission Date: 20210717
  Serious: Yes (Other)
  Sender: FDA-Public Use
  Company Number: IN-PFIZER INC-2021269979

PATIENT
  Age: 56 Year
  Sex: Female

DRUGS (5)
  1. PAN D [DOMPERIDONE;PANTOPRAZOLE SODIUM SESQUIHYDRATE] [Concomitant]
     Active Substance: DOMPERIDONE\PANTOPRAZOLE SODIUM
     Dosage: UNK, 2X/DAY (28 DAYS)
  2. PALBACE [Suspect]
     Active Substance: PALBOCICLIB
     Indication: BREAST CANCER METASTATIC
     Dosage: 125 MG, CYCLIC (ONCE A DAY X 21DAYS AND 1 WEEK GAP)
     Route: 048
     Dates: start: 20200706
  3. LETROZ [Concomitant]
     Indication: BREAST CANCER METASTATIC
     Dosage: 2.5 MG, 1X/DAY (28 DAYS)
  4. SHELCAL [CALCIUM CARBONATE;COLECALCIFEROL] [Concomitant]
     Dosage: 500 G, 2X/DAY (28 DAYS)
  5. IVABRAD [Concomitant]
     Dosage: 5 MG, 2X/DAY (28 DAYS)

REACTIONS (2)
  - Pleural effusion [Unknown]
  - Oedema peripheral [Unknown]
